FAERS Safety Report 4537516-3 (Version None)
Quarter: 2005Q1

REPORT INFORMATION
  Report Type: 
  Country: None (occurrence: None)
  Receive Date: 20041216
  Receipt Date: 20040819
  Transmission Date: 20050727
  Serious: Yes (Disabling)
  Sender: FDA-Public Use
  Company Number: HQWYE477523AUG04

PATIENT
  Age: 50 Year
  Sex: Female
  Weight: 49.94 kg

DRUGS (2)
  1. EFFEXOR XR [Suspect]
     Indication: MAJOR DEPRESSION
     Dosage: 75 MG CAPSULES, 2 IN THE AM AND 1 AT HS, ORAL
     Route: 048
     Dates: start: 20040101, end: 20040601
  2. ZYPREXA [Concomitant]

REACTIONS (4)
  - AKATHISIA [None]
  - DYSTONIA [None]
  - FACIAL PALSY [None]
  - TORTICOLLIS [None]
